FAERS Safety Report 8496690-7 (Version None)
Quarter: 2012Q2

REPORT INFORMATION
  Report Type: 
  Country: None (occurrence: None)
  Receive Date: 20120629
  Receipt Date: 20120618
  Transmission Date: 20120825
  Serious: Yes (Other)
  Sender: FDA-Public Use
  Company Number: PHHY2012CN044089

PATIENT
  Age: 32 Year
  Sex: Male

DRUGS (1)
  1. VISUDYNE [Suspect]
     Indication: AGE-RELATED MACULAR DEGENERATION
     Dosage: 3 MG/M^2 ONCE IV
     Route: 042
     Dates: start: 20120522, end: 20120522

REACTIONS (5)
  - CHEST DISCOMFORT [None]
  - LOSS OF CONSCIOUSNESS [None]
  - NAUSEA [None]
  - DEAFNESS [None]
  - DYSPNOEA [None]
